FAERS Safety Report 14310697 (Version 2)
Quarter: 2018Q1

REPORT INFORMATION
  Report Type: Spontaneous
  Country: US (occurrence: US)
  Receive Date: 20171220
  Receipt Date: 20180124
  Transmission Date: 20180509
  Serious: No
  Sender: FDA-Public Use
  Company Number: US-009507513-1711USA010318

PATIENT
  Age: 45 Year
  Sex: Female
  Weight: 56.87 kg

DRUGS (2)
  1. COZAAR [Concomitant]
     Active Substance: LOSARTAN POTASSIUM
     Dosage: 25 MG, QD
     Route: 048
     Dates: start: 20160823
  2. NEXPLANON [Suspect]
     Active Substance: ETONOGESTREL
     Indication: CONTRACEPTION
     Dosage: 68 MG / ONE ROD PER 3 YEARS
     Dates: start: 20171002

REACTIONS (6)
  - Device difficult to use [Recovered/Resolved]
  - Drug administration error [Unknown]
  - No adverse event [Unknown]
  - Device expulsion [Recovered/Resolved]
  - Product quality issue [Unknown]
  - Complication of device insertion [Recovered/Resolved]

NARRATIVE: CASE EVENT DATE: 2017
